FAERS Safety Report 5859989-6 (Version None)
Quarter: 2008Q3

REPORT INFORMATION
  Report Type: 
  Country: None (occurrence: None)
  Receive Date: 20080827
  Receipt Date: 20080818
  Transmission Date: 20090109
  Serious: Yes (Hospitalization, Other)
  Sender: FDA-Public Use
  Company Number: US-ELI_LILLY_AND_COMPANY-US200808000359

PATIENT
  Age: 60 Year
  Sex: Female

DRUGS (9)
  1. HUMULIN R [Suspect]
     Dosage: UNK, UNK
  2. HUMULIN N [Suspect]
     Dosage: UNK, UNK
  3. CRESTOR [Concomitant]
  4. LASIX [Concomitant]
  5. METOLAZONE [Concomitant]
  6. DIAZEPAM [Concomitant]
     Indication: PARTIAL SEIZURES
  7. COUMADIN [Concomitant]
  8. ACTOS [Concomitant]
     Dates: end: 20071101
  9. SPIRONOLACTONE [Concomitant]

REACTIONS (6)
  - DYSSTASIA [None]
  - FATIGUE [None]
  - FEELING ABNORMAL [None]
  - HYPERKALAEMIA [None]
  - MONOPLEGIA [None]
  - MUSCLE DISORDER [None]
